FAERS Safety Report 14826686 (Version 1)
Quarter: 2018Q2

REPORT INFORMATION
  Report Type: Spontaneous
  Country: US (occurrence: US)
  Receive Date: 20180430
  Receipt Date: 20180430
  Transmission Date: 20180711
  Serious: Yes (Other)
  Sender: FDA-Public Use
  Company Number: US-WEST-WARD PHARMACEUTICALS CORP.-US-H14001-18-03394

PATIENT
  Age: 76 Year
  Sex: Female

DRUGS (1)
  1. METHOTREXATE. [Suspect]
     Active Substance: METHOTREXATE
     Indication: PEMPHIGOID
     Dosage: ()
     Route: 065

REACTIONS (6)
  - Toxicity to various agents [Recovering/Resolving]
  - Mucosal toxicity [Recovering/Resolving]
  - Dermatitis [Recovering/Resolving]
  - Pancytopenia [Recovering/Resolving]
  - Eosinophilia [Recovering/Resolving]
  - Liver function test increased [Recovering/Resolving]
